FAERS Safety Report 6312560-4 (Version None)
Quarter: 2009Q3

REPORT INFORMATION
  Report Type: 
  Country: None (occurrence: None)
  Receive Date: 20090813
  Receipt Date: 20090729
  Transmission Date: 20100115
  Serious: Yes (Death)
  Sender: FDA-Public Use
  Company Number: 2008AL012001

PATIENT
  Age: 71 Year
  Sex: Male

DRUGS (57)
  1. DIGOXIN [Suspect]
     Dosage: 0.125MG, DAILY, PO
     Route: 048
     Dates: start: 20080401
  2. XANAX [Concomitant]
  3. NORCO [Concomitant]
  4. ASPIRIN [Concomitant]
  5. PLAVIX [Concomitant]
  6. DECADRON [Concomitant]
  7. CARDIZEM [Concomitant]
  8. LASIX [Concomitant]
  9. LEVAQUIN [Concomitant]
  10. OXYCONTIN [Concomitant]
  11. PROTONIX [Concomitant]
  12. EFFEXOR [Concomitant]
  13. COZAAR [Concomitant]
  14. LOPRESSOR [Concomitant]
  15. LIPITOR [Concomitant]
  16. PROPOXYPHENE NAPSYLATE [Concomitant]
  17. ALPRAZOLAM [Concomitant]
  18. HYZAAR [Concomitant]
  19. MIRALAX [Concomitant]
  20. DOK [Concomitant]
  21. ISOSORB [Concomitant]
  22. SULFADIAZINE AND TRIMETHOPRIM [Concomitant]
  23. HYOSCYAMINE [Concomitant]
  24. TOPROL-XL [Concomitant]
  25. HYDROCODONE [Concomitant]
  26. CEPHALEXIN [Concomitant]
  27. VISICOL [Concomitant]
  28. OXYBUTYNIN [Concomitant]
  29. NITROSTAT [Concomitant]
  30. ALBUTEROL [Concomitant]
  31. DUONEB [Concomitant]
  32. ASPIRIN [Concomitant]
  33. EFFEXOR [Concomitant]
  34. DOPAMINE HCL [Concomitant]
  35. VANCOMYCIN [Concomitant]
  36. CELTRIAXONE [Concomitant]
  37. LOVENOX [Concomitant]
  38. NITROGLYCERIN [Concomitant]
  39. MORPHINE SULFATE [Concomitant]
  40. ALBUTEROL [Concomitant]
  41. IPRATROPIUM BROMIDE [Concomitant]
  42. METOPROLOL [Concomitant]
  43. HYDROCODONE [Concomitant]
  44. DEXAMETHASONE [Concomitant]
  45. ALPRAZOLAM [Concomitant]
  46. SODIUM CHLORIDE [Concomitant]
  47. ZOSYN [Concomitant]
  48. MAGNESIUM OXIDE [Concomitant]
  49. TOPROL-XL [Concomitant]
  50. DILTIAZEM [Concomitant]
  51. FAMOTIDINE [Concomitant]
  52. MIRALAX [Concomitant]
  53. CALCIUM [Concomitant]
  54. SENNOSIDE [Concomitant]
  55. SULCRAFATE [Concomitant]
  56. VENLAFAXINE HCL [Concomitant]
  57. MORPHINE [Concomitant]

REACTIONS (12)
  - ABDOMINAL PAIN [None]
  - ASTHENIA [None]
  - BACK PAIN [None]
  - BALANCE DISORDER [None]
  - CARDIAC DISORDER [None]
  - ECONOMIC PROBLEM [None]
  - INJURY [None]
  - MEMORY IMPAIRMENT [None]
  - NON-SMALL CELL LUNG CANCER METASTATIC [None]
  - PAIN [None]
  - PAIN IN EXTREMITY [None]
  - URETERIC CANCER [None]
